FAERS Safety Report 13843924 (Version 2)
Quarter: 2018Q3

REPORT INFORMATION
  Report Type: Report from Study
  Country: ES (occurrence: ES)
  Receive Date: 20170808
  Receipt Date: 20180725
  Transmission Date: 20181010
  Serious: Yes (Life-Threatening, Hospitalization)
  Sender: FDA-Public Use
  Company Number: ES-JNJFOC-20170125176

PATIENT
  Age: 72 Year
  Sex: Male

DRUGS (4)
  1. BORTEZOMIB. [Suspect]
     Active Substance: BORTEZOMIB
     Indication: PLASMA CELL MYELOMA
     Dosage: 1.3 MG/M2, DAYS 1,4,8, AND 11
     Route: 058
     Dates: start: 20170102, end: 20170123
  2. DABIGATRAN [Concomitant]
     Active Substance: DABIGATRAN
     Indication: ATRIAL FIBRILLATION
  3. IBRUTINIB [Suspect]
     Active Substance: IBRUTINIB
     Indication: PLASMA CELL MYELOMA
     Route: 048
     Dates: start: 20170102, end: 20170123
  4. DEXAMETHASONE. [Suspect]
     Active Substance: DEXAMETHASONE
     Indication: PLASMA CELL MYELOMA
     Dosage: 20 MG, DAYS 1,2,4,5,8,9,11,AND 12
     Route: 048
     Dates: start: 20170102, end: 20170123

REACTIONS (1)
  - Anaemia [Recovered/Resolved]

NARRATIVE: CASE EVENT DATE: 20170123
